FAERS Safety Report 6939990-1 (Version None)
Quarter: 2010Q3

REPORT INFORMATION
  Report Type: 
  Country: None (occurrence: None)
  Receive Date: 20100825
  Receipt Date: 20100815
  Transmission Date: 20110219
  Serious: Yes (Other)
  Sender: FDA-Public Use
  Company Number: CA-JNJFOC-20091108060

PATIENT
  Sex: Male
  Weight: 82 kg

DRUGS (6)
  1. REMICADE [Suspect]
     Indication: COLITIS ULCERATIVE
     Dosage: 3RD INFUSION AT 800 MG
     Route: 042
  2. REMICADE [Suspect]
     Dosage: 400 MG
     Route: 042
  3. REMICADE [Suspect]
     Dosage: 1ST INFUSION AT 800 MG
     Route: 042
  4. BENADRYL [Concomitant]
     Route: 048
  5. ACETAMINOPHEN [Concomitant]
     Indication: PREMEDICATION
     Route: 048
  6. SOLU-CORTEF [Concomitant]
     Indication: PREMEDICATION
     Route: 042

REACTIONS (2)
  - CHEST DISCOMFORT [None]
  - DYSPNOEA [None]
